FAERS Safety Report 23350761 (Version 1)
Quarter: 2023Q4

REPORT INFORMATION
  Report Type: Spontaneous
  Country: CA (occurrence: None)
  Receive Date: 20231229
  Receipt Date: 20231229
  Transmission Date: 20240109
  Serious: Yes (Other)
  Sender: FDA-Public Use
  Company Number: CA-PFIZER INC-202300451584

PATIENT
  Age: 42 Year
  Sex: Male

DRUGS (6)
  1. METHOTREXATE [Suspect]
     Active Substance: METHOTREXATE
     Indication: Psoriatic arthropathy
     Dates: start: 2011
  2. AMOXICILLIN [Concomitant]
     Active Substance: AMOXICILLIN
  3. BUPROPION [Concomitant]
     Active Substance: BUPROPION
  4. CITALOPRAM [Concomitant]
     Active Substance: CITALOPRAM HYDROBROMIDE
  5. HUMIRA [Concomitant]
     Active Substance: ADALIMUMAB
  6. ROSUVASTATIN [Concomitant]
     Active Substance: ROSUVASTATIN

REACTIONS (6)
  - Lower respiratory tract infection [Unknown]
  - Fatigue [Unknown]
  - Pain [Unknown]
  - Decreased appetite [Unknown]
  - Swelling [Unknown]
  - Drug intolerance [Unknown]
